FAERS Safety Report 5601840-3 (Version None)
Quarter: 2008Q1

REPORT INFORMATION
  Report Type: 
  Country: None (occurrence: None)
  Receive Date: 20080124
  Receipt Date: 20080115
  Transmission Date: 20080703
  Serious: Yes (Hospitalization)
  Sender: FDA-Public Use
  Company Number: FR-PFIZER INC-2007093277

PATIENT
  Sex: Female

DRUGS (13)
  1. SU-011,248 [Suspect]
     Indication: GASTROINTESTINAL STROMAL TUMOUR
     Route: 048
     Dates: start: 20041208, end: 20071026
  2. MYOLASTAN [Concomitant]
     Route: 048
     Dates: start: 20041201
  3. DIOSMECTITE [Concomitant]
     Route: 048
  4. RETINOL [Concomitant]
     Route: 048
     Dates: start: 20050216
  5. PERCUTALGINE [Concomitant]
     Route: 048
     Dates: start: 20050216
  6. DI-ANTALVIC [Concomitant]
     Route: 048
     Dates: start: 20060717
  7. ACECLOFENAC [Concomitant]
     Route: 048
     Dates: start: 20060717
  8. OMEPRAZOLE [Concomitant]
     Route: 048
     Dates: start: 20060717
  9. LEVOTHYROX [Concomitant]
     Route: 048
     Dates: start: 20060717
  10. CREON [Concomitant]
     Dates: start: 20061016
  11. BISOPROLOL FUMARATE AND HYDROCHLOROTHIAZIDE [Concomitant]
     Route: 048
     Dates: start: 20061111
  12. PRIMPERAN INJ [Concomitant]
     Dates: start: 20061101
  13. VOGALENE [Concomitant]
     Route: 048
     Dates: start: 20061101

REACTIONS (1)
  - CARDIAC FAILURE [None]
